FAERS Safety Report 16816308 (Version 1)
Quarter: 2019Q3

REPORT INFORMATION
  Report Type: Spontaneous
  Country: CN (occurrence: CN)
  Receive Date: 20190917
  Receipt Date: 20190917
  Transmission Date: 20191005
  Serious: Yes (Hospitalization, Other)
  Sender: FDA-Public Use
  Company Number: CN-FERRINGPH-2019FE05622

PATIENT
  Age: 29 Year
  Sex: Female
  Weight: 44.3 kg

DRUGS (6)
  1. LUTROPIN ALFA RECOMBINANT [Suspect]
     Active Substance: LUTROPIN ALFA
     Indication: INFERTILITY
     Dosage: 75 IU, DAILY
     Route: 058
     Dates: start: 20190723, end: 20190725
  2. TRIPTORELIN ACETATE [Suspect]
     Active Substance: TRIPTORELIN ACETATE
     Indication: INFERTILITY
     Dosage: 0.1 MG, DAILY
     Route: 058
     Dates: start: 20190723, end: 20190725
  3. LETROZOL [Suspect]
     Active Substance: LETROZOLE
     Indication: INFERTILITY
     Dosage: 2.5 MG, DAILY
     Route: 048
     Dates: start: 20190727, end: 20190801
  4. HUMAN CHORIONIC GONADOTROPIN [Suspect]
     Active Substance: GONADOTROPHIN, CHORIONIC
     Indication: INFERTILITY
     Dosage: 200 ?G, DAILY
     Route: 058
     Dates: start: 20190726, end: 20190726
  5. MENOPUR [Suspect]
     Active Substance: FOLLITROPIN\LUTEINIZING HORMONE
     Indication: INFERTILITY
     Dosage: 75 IU, DAILY
     Route: 058
     Dates: start: 20190725, end: 20190725
  6. HUMAN GROWTH HORMONE, RECOMBINANT [Suspect]
     Active Substance: SOMATROPIN
     Indication: INFERTILITY
     Dosage: 4 IU, DAILY
     Route: 058
     Dates: start: 20190723, end: 20190725

REACTIONS (2)
  - Ovarian hyperstimulation syndrome [Unknown]
  - Hepatic function abnormal [Unknown]

NARRATIVE: CASE EVENT DATE: 20190730
